FAERS Safety Report 4750665-X (Version None)
Quarter: 2005Q3

REPORT INFORMATION
  Report Type: 
  Country: None (occurrence: None)
  Receive Date: 20050823
  Receipt Date: 20050811
  Transmission Date: 20060218
  Serious: Yes (Hospitalization)
  Sender: FDA-Public Use
  Company Number: FR-BRISTOL-MYERS SQUIBB COMPANY-13075171

PATIENT
  Age: 49 Year
  Sex: Female

DRUGS (4)
  1. GLUCOPHAGE [Suspect]
     Indication: DIABETES MELLITUS NON-INSULIN-DEPENDENT
     Route: 048
     Dates: start: 20020101, end: 20041108
  2. KLIPAL [Suspect]
     Indication: ARTHRALGIA
     Dates: start: 20041104, end: 20041105
  3. GLUCOR [Suspect]
     Indication: DIABETES MELLITUS
     Route: 048
     Dates: start: 20020101, end: 20041108
  4. FRAXIPARINE [Concomitant]
     Route: 058
     Dates: start: 20041021

REACTIONS (4)
  - COAGULOPATHY [None]
  - CYTOLYTIC HEPATITIS [None]
  - HEPATITIS CHOLESTATIC [None]
  - JOINT SPRAIN [None]
